FAERS Safety Report 14015517 (Version 16)
Quarter: 2022Q3

REPORT INFORMATION
  Report Type: Spontaneous
  Country: US (occurrence: US)
  Receive Date: 20170927
  Receipt Date: 20220919
  Transmission Date: 20221027
  Serious: Yes (Other)
  Sender: FDA-Public Use
  Company Number: US-PFIZER INC-2017149574

PATIENT
  Age: 81 Year
  Sex: Female
  Weight: 56 kg

DRUGS (20)
  1. XELJANZ [Suspect]
     Active Substance: TOFACITINIB CITRATE
     Indication: Rheumatoid arthritis
     Dosage: 5 MG, ALTERNATE DAY
     Route: 048
     Dates: start: 201611, end: 201611
  2. XELJANZ [Suspect]
     Active Substance: TOFACITINIB CITRATE
     Indication: Rheumatoid factor
     Dosage: 5 MG, 1X/DAY
     Route: 048
  3. XELJANZ [Suspect]
     Active Substance: TOFACITINIB CITRATE
     Dosage: 5 MG, DAILY [5 MG ONE TAB DAILY EXCEPT MON]
     Route: 048
  4. XELJANZ [Suspect]
     Active Substance: TOFACITINIB CITRATE
     Dosage: 5 MG, 2X/DAY [ON MONDAY, WEDNESDAY AND FRIDAY AND THEN 5MG ON ALL OTHER DAYS]
     Route: 048
  5. XELJANZ [Suspect]
     Active Substance: TOFACITINIB CITRATE
     Dosage: 5 MG, DAILY [XELJANZ 5MG DAILY AND 1 EXTRA TABLET IN THE EVENING ON MONDAY, WEDNESDAY, AND FRIDAY]
     Route: 048
  6. XELJANZ [Suspect]
     Active Substance: TOFACITINIB CITRATE
     Dosage: 10 MG (2 TABLETS OF 5 MG), ALTERNATE DAY (ON MONDAY, WEDNESDAY, AND FRIDAY)
     Route: 048
  7. XELJANZ [Suspect]
     Active Substance: TOFACITINIB CITRATE
     Dosage: 5 MG (1 TABLET), ALTERNATE DAY (ON TUESDAY, THURSDAY, SATURDAY AND SUNDAY)
     Route: 048
  8. CALCITONIN SALMON [Concomitant]
     Active Substance: CALCITONIN SALMON
     Indication: Spinal fracture
     Dosage: UNK
  9. VITAMIN D [Concomitant]
     Active Substance: VITAMIN D NOS
     Indication: Vitamin supplementation
     Dosage: 6000 IU, DAILY
  10. FAMOTIDINE [Concomitant]
     Active Substance: FAMOTIDINE
     Indication: Dyspepsia
     Dosage: 20 MG, AS NEEDED  (TWICE A DAY AS NEEDED; USUALLY ONLY TAKES ONCE A DAY)
  11. FERROUS SULFATE [Concomitant]
     Active Substance: FERROUS SULFATE
     Indication: Mineral supplementation
     Dosage: 325 MG, 1X/DAY
  12. FOLIC ACID [Concomitant]
     Active Substance: FOLIC ACID
     Dosage: 1 MG, 1X/DAY
  13. MAGNESIUM OXIDE [Concomitant]
     Active Substance: MAGNESIUM OXIDE
     Dosage: 100 MG, 2X/DAY
  14. METHOTREXATE [Concomitant]
     Active Substance: METHOTREXATE
     Indication: Rheumatoid arthritis
     Dosage: 10 MG, WEEKLY (FOUR 2.5 MG)
  15. SPIRONOLACTONE [Concomitant]
     Active Substance: SPIRONOLACTONE
     Indication: Fluid retention
     Dosage: 25 MG, 1X/DAY
  16. SYNTHROID [Concomitant]
     Active Substance: LEVOTHYROXINE SODIUM
     Indication: Thyroid disorder
     Dosage: 125 UG, 1X/DAY
  17. METOPROLOL TARTRATE [Concomitant]
     Active Substance: METOPROLOL TARTRATE
     Dosage: UNK
  18. WARFARIN [Concomitant]
     Active Substance: WARFARIN
     Dosage: UNK
  19. CARVEDILOL [Concomitant]
     Active Substance: CARVEDILOL
     Dosage: UNK
  20. AMIODARONE [Concomitant]
     Active Substance: AMIODARONE
     Dosage: UNK

REACTIONS (11)
  - Myocardial infarction [Unknown]
  - Stress cardiomyopathy [Unknown]
  - Renal disorder [Unknown]
  - Off label use [Unknown]
  - Product use issue [Unknown]
  - Dysphonia [Unknown]
  - Feeling abnormal [Unknown]
  - Pain [Unknown]
  - Drug hypersensitivity [Unknown]
  - Illness [Unknown]
  - Dyspnoea [Unknown]

NARRATIVE: CASE EVENT DATE: 20161101
